FAERS Safety Report 20394531 (Version 2)
Quarter: 2022Q1

REPORT INFORMATION
  Report Type: Spontaneous
  Country: PL (occurrence: PL)
  Receive Date: 20220129
  Receipt Date: 20220209
  Transmission Date: 20220423
  Serious: Yes (Death, Other)
  Sender: FDA-Public Use
  Company Number: PL-AMGEN-POLSP2021080412

PATIENT
  Age: 6 Year
  Sex: Male

DRUGS (6)
  1. BLINCYTO [Suspect]
     Active Substance: BLINATUMOMAB
     Indication: B precursor type acute leukaemia
     Dosage: 5 MICROGRAM/SQ. METER, QD
     Route: 065
     Dates: start: 201810, end: 2018
  2. BLINCYTO [Suspect]
     Active Substance: BLINATUMOMAB
     Dosage: 5 MICROGRAM/SQ. METER, QD
     Route: 065
     Dates: start: 2018, end: 2018
  3. BLINCYTO [Suspect]
     Active Substance: BLINATUMOMAB
     Dosage: 15 MICROGRAM/SQ. METER, QD
     Route: 065
     Dates: start: 2018
  4. METHOTREXATE [Concomitant]
     Active Substance: METHOTREXATE
  5. CYTARABINE [Concomitant]
     Active Substance: CYTARABINE
  6. PREDNISOLONE [Concomitant]
     Active Substance: PREDNISOLONE

REACTIONS (6)
  - Acute lymphocytic leukaemia recurrent [Fatal]
  - Aspartate aminotransferase increased [Unknown]
  - Alanine aminotransferase increased [Unknown]
  - Therapy non-responder [Unknown]
  - Serum ferritin increased [Recovering/Resolving]
  - Infusion related reaction [Recovered/Resolved]

NARRATIVE: CASE EVENT DATE: 20180101
